FAERS Safety Report 26105944 (Version 2)
Quarter: 2025Q4

REPORT INFORMATION
  Report Type: Report from Study
  Country: EU (occurrence: EU)
  Receive Date: 20251201
  Receipt Date: 20251210
  Transmission Date: 20260117
  Serious: Yes (Death)
  Sender: TEVA
  Company Number: EU-TEVA-VS-3399014

PATIENT

DRUGS (2)
  1. GEMCITABINE [Suspect]
     Active Substance: GEMCITABINE
     Indication: Pancreatic carcinoma
     Route: 065
  2. PHOSPHORUS P-32 [Suspect]
     Active Substance: PHOSPHORUS P-32
     Indication: Pancreatic carcinoma
     Dosage: THROUGH A 22-GAUGE FNA NEEDLE GUIDED BY ENDOSCOPIC ULTRASOUND (EUS) IMPLANTATION
     Route: 036

REACTIONS (1)
  - Drug ineffective [Fatal]
